FAERS Safety Report 7106185-0 (Version None)
Quarter: 2010Q4

REPORT INFORMATION
  Report Type: 
  Country: None (occurrence: None)
  Receive Date: 20101116
  Receipt Date: 20101104
  Transmission Date: 20110411
  Serious: Yes (Other)
  Sender: FDA-Public Use
  Company Number: DE-BAYER-201045765GPV

PATIENT
  Sex: Male

DRUGS (1)
  1. CIPRO [Suspect]

REACTIONS (1)
  - SKIN DISCOLOURATION [None]
